FAERS Safety Report 7291603-8 (Version None)
Quarter: 2011Q1

REPORT INFORMATION
  Report Type: 
  Country: None (occurrence: None)
  Receive Date: 20110201
  Receipt Date: 20110117
  Transmission Date: 20110831
  Serious: Yes (Death)
  Sender: FDA-Public Use
  Company Number: 1000018497

PATIENT
  Age: 39 Year
  Sex: Male

DRUGS (5)
  1. NOCTAMIDE (LORMETAZEPAM) (2 MILLIGRAM, TABLETS) [Suspect]
     Dosage: 2 MG (2 MG, 1 IN 1 D), ORAL
     Route: 048
  2. OXAZEPAM [Suspect]
     Dosage: 300 MG, (50 MG, 6 IN 1 D), ORAL
     Route: 048
  3. ACAMPROSATE CALCIUM [Suspect]
     Dosage: 6 DOSAGE FORMS (2 DOSAGE FORMS, 3 IN 1 D), ORAL
     Route: 048
  4. ZYPREXA [Suspect]
     Dosage: 20 MG, (10 MG, 2 IN 1 D), ORAL
     Route: 048
  5. NORFAZ (NORDAZEPAM) (15 MILLIGRAM, TABLETS) [Suspect]
     Dosage: 15 MG (15 MG, 1 IN 1 D), ORAL
     Route: 048

REACTIONS (2)
  - CARDIO-RESPIRATORY ARREST [None]
  - COMPLETED SUICIDE [None]
